FAERS Safety Report 5060331-1 (Version None)
Quarter: 2006Q3

REPORT INFORMATION
  Report Type: 
  Country: None (occurrence: None)
  Receive Date: 20060718
  Receipt Date: 20060628
  Transmission Date: 20061208
  Serious: No
  Sender: FDA-Public Use
  Company Number: US200606005966

PATIENT
  Age: 38 Year
  Sex: Male

DRUGS (2)
  1. STRATTERA [Suspect]
     Indication: ATTENTION DEFICIT/HYPERACTIVITY DISORDER
     Dosage: 28 MG
     Dates: start: 20060401, end: 20060501
  2. ANDROGEL [Concomitant]

REACTIONS (2)
  - DIZZINESS [None]
  - VENTRICULAR EXTRASYSTOLES [None]
